FAERS Safety Report 25643667 (Version 1)
Quarter: 2025Q3

REPORT INFORMATION
  Report Type: Spontaneous
  Country: GB (occurrence: GB)
  Receive Date: 20250805
  Receipt Date: 20250805
  Transmission Date: 20251021
  Serious: Yes (Other)
  Sender: TEVA
  Company Number: GB-MHRA-WEBCOVID-202507261621232590-PKDBH

PATIENT
  Sex: Male
  Weight: 71 kg

DRUGS (8)
  1. NAPROXEN [Suspect]
     Active Substance: NAPROXEN
     Indication: Pain in extremity
     Route: 065
     Dates: start: 20250701, end: 20250706
  2. ALENDRONIC ACID [Concomitant]
     Active Substance: ALENDRONIC ACID
     Indication: Giant cell arteritis
  3. CARVEDILOL [Concomitant]
     Active Substance: CARVEDILOL
     Indication: Hypertension
  4. ADCAL [Concomitant]
     Indication: Product used for unknown indication
  5. OMEPRAZOLE [Concomitant]
     Active Substance: OMEPRAZOLE
     Indication: Giant cell arteritis
  6. AMLODIPINE [Concomitant]
     Active Substance: AMLODIPINE BESYLATE
     Indication: Hypertension
  7. VITAMIN D [Concomitant]
     Active Substance: VITAMIN D NOS
     Indication: Giant cell arteritis
  8. PREDNISOLONE [Concomitant]
     Active Substance: PREDNISOLONE
     Indication: Giant cell arteritis

REACTIONS (2)
  - Gastrooesophageal reflux disease [Unknown]
  - Abdominal pain upper [Recovered/Resolved]

NARRATIVE: CASE EVENT DATE: 20250702
